FAERS Safety Report 8028101-X (Version None)
Quarter: 2012Q1

REPORT INFORMATION
  Report Type: 
  Country: None (occurrence: None)
  Receive Date: 20120104
  Receipt Date: 20111223
  Transmission Date: 20120608
  Serious: Yes (Hospitalization)
  Sender: FDA-Public Use
  Company Number: TPA2011A08392

PATIENT
  Age: 73 Year
  Sex: Male
  Weight: 89.8122 kg

DRUGS (4)
  1. TAMSULOSIN HCL [Concomitant]
  2. ACTOS [Suspect]
     Indication: TYPE 2 DIABETES MELLITUS
     Dosage: 30 MG, 1 IN 1 D, PER ORAL
     Route: 048
     Dates: start: 20081130
  3. GLIPIZIDE ER (GLIPIZIDE) [Concomitant]
  4. METFORMIN ER (METFORMIN HYDROCHLORIDE] [Concomitant]

REACTIONS (1)
  - BLADDER CANCER [None]
